FAERS Safety Report 9132627 (Version 2)
Quarter: 2014Q1

REPORT INFORMATION
  Report Type: Spontaneous
  Country: US (occurrence: US)
  Receive Date: 20130120
  Receipt Date: 20140205
  Transmission Date: 20141002
  Serious: No
  Sender: FDA-Public Use
  Company Number: US-ALLERGAN-1212407US

PATIENT
  Sex: Female

DRUGS (3)
  1. BOTOX COSMETIC [Suspect]
     Indication: SKIN WRINKLING
     Dosage: 31 UNITS, SINGLE
     Route: 030
     Dates: start: 20120723, end: 20120723
  2. BOTOX COSMETIC [Suspect]
     Indication: SKIN WRINKLING
     Dosage: 23 UNITS, SINGLE
     Route: 030
     Dates: start: 20130328, end: 20130328
  3. BOTOX COSMETIC [Suspect]
     Indication: SKIN WRINKLING

REACTIONS (9)
  - Eyelid oedema [Unknown]
  - Dyspnoea [Unknown]
  - Eyelids pruritus [Unknown]
  - Sleep disorder [Unknown]
  - Panic attack [Unknown]
  - Erythema [Unknown]
  - Eye irritation [Unknown]
  - Eye swelling [Unknown]
  - Eye pain [Unknown]
